FAERS Safety Report 5318122-X (Version None)
Quarter: 2007Q2

REPORT INFORMATION
  Report Type: 
  Country: None (occurrence: None)
  Receive Date: 20070507
  Receipt Date: 20070413
  Transmission Date: 20071010
  Serious: Yes (Life-Threatening)
  Sender: FDA-Public Use
  Company Number: JP-ROCHE-490637

PATIENT
  Age: 53 Year
  Sex: Female
  Weight: 60 kg

DRUGS (8)
  1. TAMIFLU [Suspect]
     Route: 048
     Dates: start: 20070326, end: 20070326
  2. TAMIFLU [Suspect]
     Route: 048
     Dates: start: 20070327, end: 20070327
  3. THYRADIN S [Suspect]
     Indication: DRUG USE FOR UNKNOWN INDICATION
     Route: 048
     Dates: start: 20070325, end: 20070325
  4. UNSPECIFIED DRUG [Suspect]
     Indication: DRUG USE FOR UNKNOWN INDICATION
     Dosage: DOSE FORM REPORTED AS ORAL FORMULATION (NOT OTHERWISE SPECIFIED).
     Route: 048
     Dates: start: 20070325, end: 20070325
  5. ALUMINUM FLUFENAMATE [Concomitant]
     Dosage: REPORTED AS OPAFERUMIN.
     Route: 048
     Dates: start: 20070325, end: 20070328
  6. BROMHEXINE HYDROCHLORIDE [Concomitant]
     Dosage: REPORTED AS FULPEN.
     Route: 048
     Dates: start: 20070325, end: 20070328
  7. BROCIN [Concomitant]
     Route: 048
     Dates: start: 20070325, end: 20070328
  8. FLUMARIN [Concomitant]
     Route: 041
     Dates: start: 20070325, end: 20070325

REACTIONS (1)
  - SHOCK [None]
